FAERS Safety Report 8198500-4 (Version None)
Quarter: 2012Q1

REPORT INFORMATION
  Report Type: 
  Country: None (occurrence: None)
  Receive Date: 20120309
  Receipt Date: 20120301
  Transmission Date: 20120608
  Serious: Yes (Hospitalization)
  Sender: FDA-Public Use
  Company Number: PHHO2011IT06209

PATIENT
  Sex: Male
  Weight: 70 kg

DRUGS (3)
  1. NEORAL [Concomitant]
     Indication: RENAL TRANSPLANT
     Dosage: 100+75 BID
     Route: 048
     Dates: start: 20090912, end: 20091007
  2. PREDNISONE TAB [Concomitant]
     Indication: RENAL TRANSPLANT
     Dosage: 12.5 MG, QD
     Route: 048
     Dates: start: 20090916, end: 20091007
  3. CERTICAN [Suspect]
     Indication: RENAL TRANSPLANT
     Dosage: 1.5 MG, BID
     Route: 048
     Dates: start: 20090911, end: 20091007

REACTIONS (2)
  - RENAL TUBULAR NECROSIS [None]
  - TRANSPLANT REJECTION [None]
